FAERS Safety Report 15663790 (Version 3)
Quarter: 2019Q1

REPORT INFORMATION
  Report Type: Spontaneous
  Country: PT (occurrence: PT)
  Receive Date: 20181128
  Receipt Date: 20190201
  Transmission Date: 20190417
  Serious: Yes (Life-Threatening, Hospitalization, Other)
  Sender: FDA-Public Use
  Company Number: PT-AUROBINDO-AUR-APL-2018-056077

PATIENT

DRUGS (1)
  1. METFORMIN [Suspect]
     Active Substance: METFORMIN HYDROCHLORIDE
     Indication: TYPE 2 DIABETES MELLITUS
     Dosage: UNK
     Route: 048

REACTIONS (14)
  - Hyperkalaemia [Recovering/Resolving]
  - Lactic acidosis [Recovered/Resolved]
  - Toxicity to various agents [Recovering/Resolving]
  - Cardio-respiratory arrest [Recovered/Resolved]
  - Condition aggravated [Recovering/Resolving]
  - Hypoglycaemia [Recovering/Resolving]
  - Hyperlactacidaemia [Recovering/Resolving]
  - General physical health deterioration [Unknown]
  - Slow speech [Recovering/Resolving]
  - Altered state of consciousness [Recovering/Resolving]
  - Hypothermia [Recovering/Resolving]
  - Supraventricular tachycardia [Unknown]
  - Overdose [Unknown]
  - Acute kidney injury [Recovered/Resolved]
